FAERS Safety Report 6946408-1 (Version None)
Quarter: 2010Q3

REPORT INFORMATION
  Report Type: 
  Country: None (occurrence: None)
  Receive Date: 20100827
  Receipt Date: 20100813
  Transmission Date: 20110219
  Serious: Yes (Hospitalization, Disabling)
  Sender: FDA-Public Use
  Company Number: US-ELI_LILLY_AND_COMPANY-US201007004087

PATIENT
  Sex: Female

DRUGS (17)
  1. FORTEO [Suspect]
     Indication: OSTEOPOROSIS
     Dosage: 20 UG, DAILY (1/D)
  2. PLAVIX [Concomitant]
     Dosage: 75 MG, DAILY (1/D)
  3. PREDNISONE [Concomitant]
     Dosage: 2.5 MG, DAILY (1/D)
  4. FOLIC ACID [Concomitant]
     Dosage: 1 MG, DAILY (1/D)
  5. FERROUS SULFATE [Concomitant]
     Dosage: 325 MG, DAILY (1/D)
  6. ISOSORBIDE [Concomitant]
     Dosage: 40 MG, 3/D
  7. COREG [Concomitant]
     Dosage: 12.5 MG, 2/D
  8. SINVASTATINA [Concomitant]
     Dosage: 40 MG, 3/W
  9. TRAMADOL HCL [Concomitant]
     Indication: PAIN
     Dosage: 50 MG, AS NEEDED
  10. PROCRIT [Concomitant]
     Indication: ANAEMIA
     Dosage: UNK, OTHER
  11. PANTOPRAZOLE [Concomitant]
     Dosage: 40 MG, DAILY (1/D)
  12. ASPIRIN [Concomitant]
     Dosage: 81 MG, DAILY (1/D)
  13. PROAMATINE [Concomitant]
     Dosage: 2.5 MG, 2/D
  14. AMARYL [Concomitant]
     Dosage: 1 MG, DAILY (1/D)
  15. METFORMIN [Concomitant]
  16. LISINOPRIL [Concomitant]
  17. METHOTREXATE [Concomitant]

REACTIONS (2)
  - GAIT DISTURBANCE [None]
  - RENAL FAILURE ACUTE [None]
